FAERS Safety Report 6587137-6 (Version None)
Quarter: 2010Q1

REPORT INFORMATION
  Report Type: 
  Country: None (occurrence: None)
  Receive Date: 20100217
  Receipt Date: 20090423
  Transmission Date: 20100710
  Serious: Yes (Other)
  Sender: FDA-Public Use
  Company Number: US-ALLERGAN-0905700US

PATIENT
  Sex: Female

DRUGS (2)
  1. BOTOX [Suspect]
     Indication: NECK PAIN
     Dosage: UNK, SINGLE
     Route: 030
     Dates: start: 20090331, end: 20090331
  2. STEROID [Concomitant]
     Dosage: UNK, SINGLE
     Route: 008
     Dates: start: 20090331, end: 20090331

REACTIONS (2)
  - DRY MOUTH [None]
  - DYSPHAGIA [None]
